FAERS Safety Report 11848957 (Version 11)
Quarter: 2018Q4

REPORT INFORMATION
  Report Type: Report from Study
  Country: GB (occurrence: GB)
  Receive Date: 20151218
  Receipt Date: 20181121
  Transmission Date: 20190204
  Serious: Yes (Hospitalization, Other)
  Sender: FDA-Public Use
  Company Number: PHFR2015GB009486

PATIENT
  Age: 65 Year
  Sex: Female
  Weight: 56 kg

DRUGS (12)
  1. AFINITOR [Suspect]
     Active Substance: EVEROLIMUS
     Indication: BREAST CANCER METASTATIC
     Dosage: 5 MG, QD
     Route: 048
     Dates: start: 20150612, end: 20151206
  2. MORPHINE [Concomitant]
     Active Substance: MORPHINE
     Indication: ANALGESIC THERAPY
     Dosage: 2.5 TO 5 MG, PRN
     Route: 048
     Dates: start: 201507
  3. OMEPRAZOLE. [Concomitant]
     Active Substance: OMEPRAZOLE
     Indication: DYSPEPSIA
     Dosage: 20 MG, QD
     Route: 048
     Dates: start: 20151207
  4. CODEINE [Concomitant]
     Active Substance: CODEINE
     Indication: ANALGESIC THERAPY
     Dosage: 1.2 G, QD
     Route: 048
     Dates: start: 20151206
  5. OMEPRAZOLE. [Concomitant]
     Active Substance: OMEPRAZOLE
     Indication: DYSPEPSIA
  6. AFINITOR [Suspect]
     Active Substance: EVEROLIMUS
     Dosage: 5 MG, QD
     Route: 048
     Dates: start: 20160120
  7. EXEMESTANE. [Concomitant]
     Active Substance: EXEMESTANE
     Indication: BREAST CANCER METASTATIC
     Dosage: 25 MG, QD
     Route: 048
     Dates: start: 20150612
  8. IBUPROFEN. [Concomitant]
     Active Substance: IBUPROFEN
     Indication: ANALGESIC THERAPY
     Dosage: 1.6 G, QD
     Route: 048
     Dates: start: 2015
  9. MORPHINE [Concomitant]
     Active Substance: MORPHINE
     Dosage: 5 TO 10 MG
     Route: 048
     Dates: start: 2015
  10. CODEINE [Concomitant]
     Active Substance: CODEINE
     Dosage: 240 MG
     Route: 048
     Dates: start: 2015
  11. ADCAL D3 [Concomitant]
     Active Substance: CALCIUM CARBONATE\CHOLECALCIFEROL
     Indication: PRODUCT USED FOR UNKNOWN INDICATION
     Dosage: 2 DF, UNK
     Route: 048
  12. CYCLIZINE [Concomitant]
     Active Substance: CYCLIZINE
     Indication: NAUSEA
     Dosage: 150 MG, QD
     Route: 048
     Dates: start: 20151206

REACTIONS (12)
  - Vomiting [Recovered/Resolved]
  - Stomatitis [Recovered/Resolved]
  - Vasculitis [Recovered/Resolved]
  - Rectal haemorrhage [Recovered/Resolved]
  - Pollakiuria [Recovered/Resolved]
  - Stomatitis [Unknown]
  - Diverticulitis [Recovered/Resolved]
  - Stomatitis [Recovered/Resolved]
  - Stress fracture [Recovered/Resolved]
  - Radiation proctitis [Recovered/Resolved]
  - Rectal haemorrhage [Recovered/Resolved]
  - Haemorrhoids [Unknown]

NARRATIVE: CASE EVENT DATE: 20150624
